FAERS Safety Report 6639733-5 (Version None)
Quarter: 2010Q1

REPORT INFORMATION
  Report Type: 
  Country: None (occurrence: None)
  Receive Date: 20100301
  Receipt Date: 20090811
  Transmission Date: 20100710
  Serious: Yes (Hospitalization)
  Sender: FDA-Public Use
  Company Number: RB-19261-2009

PATIENT
  Age: 29 Year
  Sex: Male

DRUGS (9)
  1. SUBOXONE [Suspect]
     Indication: DRUG DEPENDENCE
     Dosage: 24 MG QD SUBLINGUAL; SEE IMAGE
     Route: 060
     Dates: start: 20081106, end: 20090301
  2. SUBOXONE [Suspect]
     Indication: DRUG DEPENDENCE
     Dosage: 24 MG QD SUBLINGUAL; SEE IMAGE
     Route: 060
     Dates: start: 20090301, end: 20090420
  3. SUBOXONE [Suspect]
     Indication: DRUG DEPENDENCE
     Dosage: 24 MG QD SUBLINGUAL; SEE IMAGE
     Route: 060
     Dates: start: 20090401, end: 20090601
  4. SUBOXONE [Suspect]
     Indication: DRUG DEPENDENCE
     Dosage: 24 MG QD SUBLINGUAL; SEE IMAGE
     Route: 060
     Dates: start: 20090601, end: 20090805
  5. SUBOXONE [Suspect]
     Indication: DRUG DEPENDENCE
     Dosage: 24 MG QD SUBLINGUAL; SEE IMAGE
     Route: 060
     Dates: start: 20090806
  6. PERCOCET [Suspect]
     Indication: DRUG USE FOR UNKNOWN INDICATION
     Dosage: ORAL
     Route: 048
     Dates: start: 20081108, end: 20081108
  7. XANAX [Suspect]
     Indication: ANXIETY
     Dosage: ORAL
     Route: 048
     Dates: start: 20090401, end: 20090401
  8. TRAZODONE [Suspect]
     Indication: INSOMNIA
     Dosage: ORAL
     Route: 048
     Dates: start: 20090401, end: 20090401
  9. BUSPAR [Suspect]
     Indication: DRUG USE FOR UNKNOWN INDICATION
     Dosage: ORAL
     Route: 048
     Dates: start: 20090401, end: 20090401

REACTIONS (8)
  - CONSTIPATION [None]
  - DRUG INTERACTION [None]
  - EUPHORIC MOOD [None]
  - FACIAL BONES FRACTURE [None]
  - HEADACHE [None]
  - MALAISE [None]
  - OROPHARYNGEAL PAIN [None]
  - WEIGHT INCREASED [None]
